FAERS Safety Report 5134663-2 (Version None)
Quarter: 2006Q4

REPORT INFORMATION
  Report Type: 
  Country: None (occurrence: None)
  Receive Date: 20061025
  Receipt Date: 20061023
  Transmission Date: 20070319
  Serious: Yes (Hospitalization)
  Sender: FDA-Public Use
  Company Number: FR-GLAXOSMITHKLINE-B0443513A

PATIENT

DRUGS (1)
  1. AVANDIA [Suspect]
     Dosage: 1.75TAB PER DAY
     Route: 048

REACTIONS (1)
  - PROTHROMBIN LEVEL DECREASED [None]
